FAERS Safety Report 5087470-3 (Version None)
Quarter: 2006Q3

REPORT INFORMATION
  Report Type: 
  Country: None (occurrence: None)
  Receive Date: 20060824
  Receipt Date: 20060817
  Transmission Date: 20061208
  Serious: Yes (Other)
  Sender: FDA-Public Use
  Company Number: JP-AVENTIS-200612572JP

PATIENT
  Sex: Female

DRUGS (1)
  1. ALLEGRA [Suspect]
     Indication: COUGH
     Route: 048
     Dates: start: 20060701, end: 20060801

REACTIONS (2)
  - ANGIONEUROTIC OEDEMA [None]
  - HAEMORRHAGE SUBCUTANEOUS [None]
